FAERS Safety Report 17599544 (Version 2)
Quarter: 2020Q2

REPORT INFORMATION
  Report Type: Spontaneous
  Country: FR (occurrence: FR)
  Receive Date: 20200330
  Receipt Date: 20200409
  Transmission Date: 20200713
  Serious: Yes (Hospitalization)
  Sender: FDA-Public Use
  Company Number: FR-CELGENEUS-FRA-20200307939

PATIENT
  Age: 85 Year
  Sex: Male
  Weight: 88 kg

DRUGS (16)
  1. OMEPRAZOLE. [Concomitant]
     Active Substance: OMEPRAZOLE
     Indication: PROPHYLAXIS
     Dosage: 20 MILLIGRAM
     Route: 048
  2. FUROSEMIDE. [Concomitant]
     Active Substance: FUROSEMIDE
     Indication: OEDEMA PERIPHERAL
     Dosage: 120 MILLIGRAM
     Route: 048
     Dates: start: 20191004
  3. PANTOPRAZOLE [Concomitant]
     Active Substance: PANTOPRAZOLE
     Indication: PROPHYLAXIS
     Dosage: 20 MILLIGRAM
     Route: 048
     Dates: start: 20190910
  4. ALLOPURINOL. [Concomitant]
     Active Substance: ALLOPURINOL
     Indication: CHRONIC KIDNEY DISEASE
     Dosage: 200 MILLIGRAM
     Route: 048
     Dates: start: 20191004
  5. MONOPROST [Concomitant]
     Active Substance: LATANOPROST
     Indication: GLAUCOMA
     Dosage: 50 MICROGRAM
     Route: 047
  6. PRACINOSTAT OR PLACEBO [Concomitant]
     Indication: ACUTE MYELOID LEUKAEMIA
     Dosage: 60 MILLIGRAM
     Route: 048
     Dates: start: 20190930, end: 20200221
  7. FUROSEMIDE. [Concomitant]
     Active Substance: FUROSEMIDE
     Indication: CARDIAC FAILURE
     Dosage: 120 MILLIGRAM
     Route: 048
     Dates: start: 20190927
  8. AZACITIDINE. [Suspect]
     Active Substance: AZACITIDINE
     Indication: ACUTE MYELOID LEUKAEMIA
     Route: 058
     Dates: start: 20190930, end: 20200211
  9. CORTANCYL [Concomitant]
     Active Substance: PREDNISONE
     Indication: ARTHRALGIA
     Dosage: 20 MILLIGRAM
     Route: 048
     Dates: start: 20190910
  10. APREPITANT. [Concomitant]
     Active Substance: APREPITANT
     Indication: NAUSEA
     Route: 048
     Dates: start: 20190930
  11. TRAMADOL. [Concomitant]
     Active Substance: TRAMADOL
     Indication: ARTHRALGIA
     Route: 048
  12. METOPIMAZINE [Concomitant]
     Active Substance: METOPIMAZINE
     Indication: ANTIEMETIC SUPPORTIVE CARE
     Dosage: 15 MILLIGRAM
     Route: 048
     Dates: start: 20191004
  13. CELIPROLOL [Concomitant]
     Active Substance: CELIPROLOL
     Indication: PROPHYLAXIS
     Dosage: 200 MILLIGRAM
     Route: 048
  14. POTASSIUM CHLORIDE. [Concomitant]
     Active Substance: POTASSIUM CHLORIDE
     Indication: DRUG INTERACTION
     Dosage: 1200 MILLIGRAM
     Route: 065
     Dates: start: 20190910
  15. ACETYLSALICYLIC ACID [Concomitant]
     Active Substance: ASPIRIN
     Indication: ANTICOAGULANT THERAPY
     Dosage: 75 MILLIGRAM
     Route: 048
  16. PERMIXON [Concomitant]
     Active Substance: HERBALS\SAW PALMETTO
     Indication: DYSURIA
     Route: 048

REACTIONS (2)
  - Bronchitis [Recovered/Resolved]
  - Cardiac failure [Recovered/Resolved]

NARRATIVE: CASE EVENT DATE: 20200306
